FAERS Safety Report 14635684 (Version 2)
Quarter: 2018Q2

REPORT INFORMATION
  Report Type: Spontaneous
  Country: BR (occurrence: BR)
  Receive Date: 20180314
  Receipt Date: 20180508
  Transmission Date: 20180711
  Serious: Yes (Other)
  Sender: FDA-Public Use
  Company Number: BR-BRISTOL-MYERS SQUIBB COMPANY-BMS-2018-022306

PATIENT
  Age: 85 Year
  Sex: Female

DRUGS (1)
  1. ELIQUIS [Suspect]
     Active Substance: APIXABAN
     Indication: PRODUCT USED FOR UNKNOWN INDICATION
     Dosage: 5 MG, BID
     Route: 065
     Dates: start: 2017

REACTIONS (5)
  - Adverse event [Unknown]
  - Gait disturbance [Not Recovered/Not Resolved]
  - Thrombosis [Unknown]
  - Dizziness [Not Recovered/Not Resolved]
  - Cardiac valve disease [Unknown]

NARRATIVE: CASE EVENT DATE: 20180305
